FAERS Safety Report 6793253-6 (Version None)
Quarter: 2010Q2

REPORT INFORMATION
  Report Type: 
  Country: None (occurrence: None)
  Receive Date: 20100624
  Receipt Date: 20091103
  Transmission Date: 20101027
  Serious: Yes (Hospitalization, Other)
  Sender: FDA-Public Use
  Company Number: US-MYLANLABS-2009S1017228

PATIENT
  Age: 49 Year
  Sex: Female
  Weight: 99.3 kg

DRUGS (6)
  1. CLOZAPINE [Suspect]
     Indication: MENTAL STATUS CHANGES
     Route: 048
     Dates: end: 20090930
  2. DEPAKOTE ER [Concomitant]
     Route: 048
  3. FLUOXETINE HCL [Concomitant]
     Route: 048
  4. COLACE [Concomitant]
     Route: 048
  5. BENZTROPINE MESYLATE [Concomitant]
     Route: 048
  6. LASIX [Concomitant]
     Route: 048

REACTIONS (2)
  - CONSTIPATION [None]
  - GRANULOCYTOPENIA [None]
